FAERS Safety Report 16116552 (Version 1)
Quarter: 2019Q1

REPORT INFORMATION
  Report Type: Spontaneous
  Country: DK (occurrence: DK)
  Receive Date: 20190326
  Receipt Date: 20190326
  Transmission Date: 20190418
  Serious: Yes (Death, Hospitalization)
  Sender: FDA-Public Use
  Company Number: DK-TEVA-2019-DK-1028980

PATIENT
  Age: 71 Year
  Sex: Female

DRUGS (1)
  1. BENDAMUSTIN ^ACTAVIS^ [Suspect]
     Active Substance: BENDAMUSTINE
     Indication: WALDENSTROM^S MACROGLOBULINAEMIA
     Dosage: DOSAGE: 16 + 17OCT 179 MG, 13 + 14 NOV: 175,5 MG, 14 + AMP; SERIES 4 AND 5 UNKNOWN
     Route: 042
     Dates: start: 20171016, end: 20180223

REACTIONS (10)
  - Pyrexia [Fatal]
  - White blood cell count decreased [Fatal]
  - Nausea [Fatal]
  - Cytomegalovirus infection [Fatal]
  - Sepsis [Fatal]
  - Decreased immune responsiveness [Fatal]
  - Cystitis escherichia [Fatal]
  - Altered state of consciousness [Fatal]
  - Respiratory distress [Fatal]
  - C-reactive protein increased [Fatal]

NARRATIVE: CASE EVENT DATE: 2018
